FAERS Safety Report 5084693-4 (Version None)
Quarter: 2006Q3

REPORT INFORMATION
  Report Type: 
  Country: None (occurrence: None)
  Receive Date: 20060818
  Receipt Date: 20060818
  Transmission Date: 20061208
  Serious: No
  Sender: FDA-Public Use
  Company Number: None

PATIENT
  Sex: Male
  Weight: 93.4863 kg

DRUGS (9)
  1. CEFTRIAXONE [Suspect]
     Indication: PYELONEPHRITIS
     Dosage: 1 GM QD IV
     Route: 042
     Dates: start: 20060520, end: 20060520
  2. OXYCODONE AND ACETAMINOPHEN [Concomitant]
  3. AMOXICILLIN [Concomitant]
  4. CIPROFLOXACIN HCL [Concomitant]
  5. DOCUSATE NA [Concomitant]
  6. FLUNISOLIDE [Concomitant]
  7. HYDROMORPHONE HCL [Concomitant]
  8. METOPROLOL TARTRATE [Concomitant]
  9. MORPHINE SULFATE [Concomitant]

REACTIONS (2)
  - NASOPHARYNGEAL DISORDER [None]
  - SWOLLEN TONGUE [None]
